FAERS Safety Report 21512566 (Version 2)
Quarter: 2022Q4

REPORT INFORMATION
  Report Type: Report from Study
  Country: CA (occurrence: CA)
  Receive Date: 20221027
  Receipt Date: 20221116
  Transmission Date: 20230113
  Serious: Yes (Other)
  Sender: FDA-Public Use
  Company Number: CA-NOVARTISPH-NVSC2022CA239127

PATIENT
  Age: 40 Year
  Sex: Female

DRUGS (1)
  1. ELTROMBOPAG OLAMINE [Suspect]
     Active Substance: ELTROMBOPAG OLAMINE
     Indication: Immune thrombocytopenia
     Dosage: 50 MG, QD
     Route: 048
     Dates: start: 20220919, end: 20220928

REACTIONS (9)
  - Kidney infection [Unknown]
  - Cough [Unknown]
  - Nasopharyngitis [Unknown]
  - Headache [Unknown]
  - Feeding disorder [Unknown]
  - Pain in extremity [Unknown]
  - Gait inability [Unknown]
  - Vomiting [Unknown]
  - Diarrhoea [Unknown]

NARRATIVE: CASE EVENT DATE: 20220927
